FAERS Safety Report 6146618-X (Version None)
Quarter: 2009Q2

REPORT INFORMATION
  Report Type: 
  Country: None (occurrence: None)
  Receive Date: 20090407
  Receipt Date: 20090407
  Transmission Date: 20091009
  Serious: Yes (Other)
  Sender: FDA-Public Use
  Company Number: US-PFIZER INC-2008099481

PATIENT
  Sex: Female
  Weight: 86.168 kg

DRUGS (10)
  1. DILANTIN-125 [Suspect]
     Indication: CONVULSION
     Dosage: UNK
     Dates: start: 19850101, end: 20020101
  2. LYRICA [Suspect]
     Indication: PARTIAL SEIZURES
     Dosage: UNK
     Dates: start: 20080701
  3. LYRICA [Suspect]
     Indication: PAIN
  4. LAMICTAL [Suspect]
     Indication: CONVULSION
     Dosage: UNK
     Dates: start: 20020101
  5. KEPPRA [Suspect]
     Indication: CONVULSION
     Dosage: UNK
     Dates: start: 20080301
  6. METHADOSE [Suspect]
     Dosage: UNK
     Dates: start: 19980101
  7. IBUPROFEN [Concomitant]
  8. FLEXERIL [Concomitant]
     Dosage: UNK
  9. PREVACID [Concomitant]
     Dosage: UNK
  10. ANTACID TAB [Concomitant]
     Dosage: UNK

REACTIONS (33)
  - ARTHRITIS [None]
  - ATAXIA [None]
  - BRONCHITIS [None]
  - CERVICAL VERTEBRAL FRACTURE [None]
  - COUGH [None]
  - DIPLOPIA [None]
  - DIZZINESS [None]
  - DRUG INEFFECTIVE [None]
  - FATIGUE [None]
  - GALLBLADDER DISORDER [None]
  - GASTROOESOPHAGEAL REFLUX DISEASE [None]
  - HERPES VIRUS INFECTION [None]
  - INFLUENZA [None]
  - INJURY [None]
  - IRRITABLE BOWEL SYNDROME [None]
  - LIVER DISORDER [None]
  - LOSS OF CONSCIOUSNESS [None]
  - MEMORY IMPAIRMENT [None]
  - MIGRAINE [None]
  - MUSCLE INJURY [None]
  - MUSCLE TWITCHING [None]
  - MUSCULAR WEAKNESS [None]
  - NERVE INJURY [None]
  - OEDEMA [None]
  - OSTEOPOROSIS [None]
  - PEPTIC ULCER [None]
  - POLYP [None]
  - SINUSITIS [None]
  - SOMNOLENCE [None]
  - TOOTH FRACTURE [None]
  - TREMOR [None]
  - VISION BLURRED [None]
  - WEIGHT INCREASED [None]
